FAERS Safety Report 8610982-X (Version None)
Quarter: 2012Q3

REPORT INFORMATION
  Report Type: 
  Country: None (occurrence: None)
  Receive Date: 20120809
  Receipt Date: 20120730
  Transmission Date: 20120928
  Serious: Yes (Other)
  Sender: FDA-Public Use
  Company Number: 2012SA051070

PATIENT
  Age: 74 Year
  Sex: Female
  Weight: 52 kg

DRUGS (4)
  1. KEFLEX [Concomitant]
  2. HUMIRA [Concomitant]
  3. MENTHOL [Suspect]
     Indication: NECK PAIN
     Dates: start: 20120712, end: 20120714
  4. CIPRO [Concomitant]

REACTIONS (3)
  - CHEMICAL BURN OF SKIN [None]
  - SKIN EXFOLIATION [None]
  - PAIN [None]
